FAERS Safety Report 7579232-X (Version None)
Quarter: 2011Q2

REPORT INFORMATION
  Report Type: 
  Country: None (occurrence: None)
  Receive Date: 20110628
  Receipt Date: 20110624
  Transmission Date: 20111010
  Serious: Yes (Death, Hospitalization)
  Sender: FDA-Public Use
  Company Number: PHHY2011EC56544

PATIENT
  Sex: Female

DRUGS (3)
  1. ENALAPRIL MALEATE [Concomitant]
  2. GLEEVEC [Suspect]
     Indication: CHRONIC MYELOID LEUKAEMIA
     Dosage: 800 MG, DAILY
     Route: 048
     Dates: start: 20070711, end: 20110616
  3. GLUCOFAGE [Concomitant]

REACTIONS (6)
  - BLAST CELL CRISIS [None]
  - ACUTE RESPIRATORY FAILURE [None]
  - RESPIRATORY DISTRESS [None]
  - DYSPNOEA [None]
  - RESPIRATORY TRACT INFECTION [None]
  - ANAEMIA [None]
